FAERS Safety Report 17610949 (Version 3)
Quarter: 2020Q2

REPORT INFORMATION
  Report Type: Report from Study
  Country: FR (occurrence: FR)
  Receive Date: 20200401
  Receipt Date: 20200508
  Transmission Date: 20200713
  Serious: Yes (Death, Hospitalization, Other)
  Sender: FDA-Public Use
  Company Number: FR-PFIZER INC-2020086013

PATIENT
  Age: 56 Year
  Sex: Female
  Weight: 74 kg

DRUGS (14)
  1. DALACINE [Suspect]
     Active Substance: CLINDAMYCIN
     Indication: ARTHRITIS BACTERIAL
     Dosage: 1 DF, 3X/DAY
     Dates: end: 20200110
  2. CHOLURSO [Suspect]
     Active Substance: URSODIOL
     Indication: GALLBLADDER DISORDER
     Dosage: 2 DF, 1X/DAY
     Dates: end: 20200110
  3. UPTRAVI [Suspect]
     Active Substance: SELEXIPAG
     Dosage: 600 UG, 2X/DAY
     Route: 048
     Dates: start: 20200205
  4. TADALAFIL. [Concomitant]
     Active Substance: TADALAFIL
     Indication: PULMONARY ARTERIAL HYPERTENSION
     Dosage: UNK
  5. TRACLEER [Concomitant]
     Active Substance: BOSENTAN
     Indication: PULMONARY ARTERIAL HYPERTENSION
     Dosage: UNK
  6. UPTRAVI [Suspect]
     Active Substance: SELEXIPAG
     Dosage: 400 UG, 2X/DAY
     Route: 048
     Dates: start: 20200107
  7. BACTRIM [Suspect]
     Active Substance: SULFAMETHOXAZOLE\TRIMETHOPRIM
     Indication: ARTHRITIS BACTERIAL
     Dosage: UNK, 3X/DAY
     Route: 048
  8. UPTRAVI [Suspect]
     Active Substance: SELEXIPAG
     Indication: PULMONARY ARTERIAL HYPERTENSION
     Dosage: 200 UG, 2X/DAY
     Route: 048
     Dates: start: 20191126, end: 20191224
  9. UPTRAVI [Suspect]
     Active Substance: SELEXIPAG
     Dosage: 600 UG, 2X/DAY
     Route: 048
     Dates: start: 20200121
  10. UPTRAVI [Suspect]
     Active Substance: SELEXIPAG
     Dosage: 200 UG, 2X/DAY
     Route: 048
     Dates: start: 20191226
  11. TADALAFIL. [Concomitant]
     Active Substance: TADALAFIL
     Dosage: UNK
  12. BACTRIM [Suspect]
     Active Substance: SULFAMETHOXAZOLE\TRIMETHOPRIM
     Dosage: 1 DF, 1X/DAY
     Route: 048
  13. TADALAFIL. [Concomitant]
     Active Substance: TADALAFIL
  14. UPTRAVI [Suspect]
     Active Substance: SELEXIPAG
     Dosage: 800 UG, 2X/DAY
     Route: 048
     Dates: start: 20200128

REACTIONS (25)
  - Epistaxis [Recovered/Resolved]
  - Erythema [Recovering/Resolving]
  - Arthralgia [Not Recovered/Not Resolved]
  - Renal disorder [Recovered/Resolved]
  - Death [Fatal]
  - Diarrhoea [Recovering/Resolving]
  - Oedema [Not Recovered/Not Resolved]
  - Localised oedema [Unknown]
  - General physical health deterioration [Unknown]
  - Muscular weakness [Not Recovered/Not Resolved]
  - Dyspepsia [Not Recovered/Not Resolved]
  - Haematoma [Unknown]
  - Dyspnoea [Recovered/Resolved]
  - Abdominal pain upper [Not Recovered/Not Resolved]
  - Bedridden [Unknown]
  - Musculoskeletal pain [Recovering/Resolving]
  - Dehydration [Unknown]
  - Fall [Not Recovered/Not Resolved]
  - Stress [Recovered/Resolved]
  - Fatigue [Recovered/Resolved]
  - Weight increased [Not Recovered/Not Resolved]
  - Abdominal rigidity [Unknown]
  - Vomiting [Not Recovered/Not Resolved]
  - Nausea [Not Recovered/Not Resolved]
  - Abdominal pain [Unknown]

NARRATIVE: CASE EVENT DATE: 20191223
